FAERS Safety Report 7704945-6 (Version None)
Quarter: 2011Q3

REPORT INFORMATION
  Report Type: 
  Country: None (occurrence: None)
  Receive Date: 20110823
  Receipt Date: 20110822
  Transmission Date: 20111222
  Serious: Yes (Other)
  Sender: FDA-Public Use
  Company Number: US-PFIZER INC-2011194247

PATIENT
  Sex: Female
  Weight: 80.726 kg

DRUGS (3)
  1. EFFEXOR [Suspect]
     Indication: ANXIETY DISORDER
     Dosage: 75 MG, 1X/DAY
  2. SYNTHROID [Concomitant]
     Indication: HYPOTHYROIDISM
     Dosage: 0.025 MG, DAILY
     Route: 048
  3. LIPITOR [Concomitant]
     Indication: BLOOD CHOLESTEROL ABNORMAL
     Dosage: 10 MG, 1X/DAY
     Route: 048

REACTIONS (2)
  - PARAESTHESIA [None]
  - URTICARIA [None]
